FAERS Safety Report 23918168 (Version 1)
Quarter: 2024Q2

REPORT INFORMATION
  Report Type: Spontaneous
  Country: US (occurrence: US)
  Receive Date: 20240530
  Receipt Date: 20240530
  Transmission Date: 20240716
  Serious: No
  Sender: FDA-Public Use
  Company Number: US-JNJFOC-20240529896

PATIENT
  Sex: Male

DRUGS (1)
  1. MENS ROGAINE EXTRA STRENGTH [Suspect]
     Active Substance: MINOXIDIL
     Indication: Alopecia
     Dosage: USING THE TUBE PROVIDED IN THE KIT AND THE PRESCRIBED AMOUNT ON THE LINES
     Route: 061

REACTIONS (2)
  - Hair colour changes [Unknown]
  - Product use in unapproved indication [Unknown]
